FAERS Safety Report 21147617 (Version 1)
Quarter: 2022Q3

REPORT INFORMATION
  Report Type: Spontaneous
  Country: None (occurrence: GB)
  Receive Date: 20220729
  Receipt Date: 20220729
  Transmission Date: 20221027
  Serious: Yes (Life-Threatening)
  Sender: FDA-Public Use
  Company Number: GB-B.Braun Medical Inc.-2131370

PATIENT
  Sex: Male

DRUGS (1)
  1. METRONIDAZOLE [Suspect]
     Active Substance: METRONIDAZOLE

REACTIONS (6)
  - Medication error [Unknown]
  - Overdose [Unknown]
  - Ventricular fibrillation [Unknown]
  - Epigastric discomfort [Unknown]
  - Nausea [Unknown]
  - Loss of consciousness [Unknown]
